FAERS Safety Report 8614544-X (Version None)
Quarter: 2012Q3

REPORT INFORMATION
  Report Type: 
  Country: None (occurrence: None)
  Receive Date: 20120823
  Receipt Date: 20120821
  Transmission Date: 20120928
  Serious: Yes (Other)
  Sender: FDA-Public Use
  Company Number: PHHY2011JP54824

PATIENT
  Sex: Male

DRUGS (27)
  1. CLOZARIL [Suspect]
     Dosage: 50 MG DAILY
     Route: 048
     Dates: start: 20101201, end: 20101201
  2. CLOZARIL [Suspect]
     Dosage: 75 MG, DAILY
     Route: 048
     Dates: start: 20101208, end: 20101208
  3. NORMATENS ^POLFA-RZESZOW^ [Concomitant]
     Dosage: 10 MG, UNK
     Route: 048
     Dates: start: 20101207, end: 20101208
  4. CLOZARIL [Suspect]
     Dosage: 25 MG DAILY
     Route: 048
     Dates: start: 20101127, end: 20101130
  5. CLOZARIL [Suspect]
     Dosage: 75 MG, DAILY
     Route: 048
     Dates: start: 20101213, end: 20101213
  6. LORAZEPAM [Concomitant]
     Dosage: 3 MG, UNK
     Route: 048
  7. PHENOBARBITAL TAB [Concomitant]
     Dosage: 1 DF, UNK
     Route: 048
  8. SENNOSIDE [Concomitant]
     Dosage: 36 MG, UNK
     Route: 048
  9. LEXOTAN [Concomitant]
     Dosage: 6 MG, UNK
     Route: 048
     Dates: start: 20101106, end: 20101130
  10. CLOZARIL [Suspect]
     Dosage: 100 MG, DAILY
     Route: 048
     Dates: start: 20101205, end: 20101207
  11. ARTANE [Concomitant]
     Dosage: 6 MG, UNK
     Route: 048
     Dates: end: 20101221
  12. CLOZARIL [Suspect]
     Indication: SCHIZOPHRENIA, PARANOID TYPE
     Dosage: 12.5 MG, DAILY
     Route: 048
     Dates: start: 20101126, end: 20101126
  13. CLOZARIL [Suspect]
     Dosage: 75 MG DAILY
     Route: 048
     Dates: start: 20101202, end: 20101204
  14. CLOZARIL [Suspect]
     Dosage: 100 MG, DAILY
     Route: 048
     Dates: start: 20101209, end: 20101212
  15. UNISIA COMBINATION [Concomitant]
     Dates: start: 20101125, end: 20101209
  16. SEROQUEL [Concomitant]
     Dosage: 350 MG, UNK
     Route: 048
  17. EMILACE [Concomitant]
     Dosage: 10 MG, UNK
     Route: 048
     Dates: start: 20101005, end: 20101201
  18. BROTIZOLAM [Concomitant]
     Dosage: 0.25 MG, UNK
     Route: 048
  19. CLOZARIL [Suspect]
     Dosage: 25 MG, DAILY
     Route: 048
     Dates: start: 20101215, end: 20101216
  20. LULLAN [Concomitant]
     Dosage: 24 MG, UNK
     Route: 048
     Dates: start: 20101115, end: 20101201
  21. RISUMIC [Concomitant]
     Dosage: 20 MG, UNK
     Route: 048
     Dates: end: 20101211
  22. RITODRINE HCL [Concomitant]
     Dosage: 4 MG, UNK
     Route: 048
  23. HALCION [Concomitant]
     Dosage: 0.25 MG, UNK
     Route: 048
  24. CLOZARIL [Suspect]
     Dosage: 50 MG, DAILY
     Route: 048
     Dates: start: 20101214, end: 20101214
  25. LAXOBERON [Concomitant]
     Dosage: 5 MG, UNK
     Route: 048
  26. TENORMIN [Concomitant]
     Dosage: 25 MG, UNK
     Route: 048
     Dates: start: 20101209, end: 20101212
  27. MOTILIUM [Concomitant]
     Dosage: 30 MG, UNK
     Dates: start: 20101208

REACTIONS (9)
  - LIVER DISORDER [None]
  - TACHYCARDIA [None]
  - C-REACTIVE PROTEIN INCREASED [None]
  - BLOOD ALKALINE PHOSPHATASE INCREASED [None]
  - GAMMA-GLUTAMYLTRANSFERASE INCREASED [None]
  - PALPITATIONS [None]
  - HAEMOGLOBIN DECREASED [None]
  - PYREXIA [None]
  - HEART RATE INCREASED [None]
